FAERS Safety Report 20481595 (Version 3)
Quarter: 2022Q3

REPORT INFORMATION
  Report Type: Spontaneous
  Country: CZ (occurrence: CZ)
  Receive Date: 20220216
  Receipt Date: 20220624
  Transmission Date: 20221026
  Serious: Yes (Hospitalization)
  Sender: FDA-Public Use
  Company Number: CZ-NOVARTISPH-NVSC2022CZ034944

PATIENT
  Age: 36 Year
  Sex: Male

DRUGS (6)
  1. OLANZAPINE [Suspect]
     Active Substance: OLANZAPINE
     Indication: Schizophrenia
     Dosage: 20 MG, QD
     Route: 065
  2. OLANZAPINE [Suspect]
     Active Substance: OLANZAPINE
     Dosage: 10 MG, QD
     Route: 065
  3. OLANZAPINE [Suspect]
     Active Substance: OLANZAPINE
     Dosage: 5 MG, QD
     Route: 065
  4. RISPERIDONE [Concomitant]
     Active Substance: RISPERIDONE
     Indication: Schizophrenia
     Dosage: MICROSPHERE
     Route: 065
  5. LURASIDONE [Concomitant]
     Active Substance: LURASIDONE
     Indication: Product used for unknown indication
     Dosage: 74 MG, QD
     Route: 065
  6. LITHIUM [Concomitant]
     Active Substance: LITHIUM
     Indication: Product used for unknown indication
     Dosage: 600 MG, QD
     Route: 065

REACTIONS (12)
  - Suicidal ideation [Not Recovered/Not Resolved]
  - Persecutory delusion [Not Recovered/Not Resolved]
  - Depression [Not Recovered/Not Resolved]
  - Sedation complication [Not Recovered/Not Resolved]
  - Condition aggravated [Unknown]
  - Apathy [Not Recovered/Not Resolved]
  - Abulia [Not Recovered/Not Resolved]
  - Persecutory delusion [Recovered/Resolved]
  - Suicidal ideation [Recovered/Resolved]
  - Rebound effect [Unknown]
  - Intentional product misuse [Unknown]
  - Intentional product misuse [Unknown]
